FAERS Safety Report 19095711 (Version 1)
Quarter: 2021Q2

REPORT INFORMATION
  Report Type: Spontaneous
  Country: JP (occurrence: JP)
  Receive Date: 20210406
  Receipt Date: 20210406
  Transmission Date: 20210717
  Serious: Yes (Other)
  Sender: FDA-Public Use
  Company Number: JP-ROCHE-2797127

PATIENT
  Age: 61 Year
  Sex: Male

DRUGS (7)
  1. LUCENTIS [Suspect]
     Active Substance: RANIBIZUMAB
     Indication: AGE-RELATED MACULAR DEGENERATION
     Dosage: UNK (BOTH EYES)
     Route: 050
     Dates: start: 201005
  2. LUCENTIS [Suspect]
     Active Substance: RANIBIZUMAB
     Dosage: UNK (LEFT EYE)
     Route: 050
     Dates: start: 201008
  3. LUCENTIS [Suspect]
     Active Substance: RANIBIZUMAB
     Dosage: UNK
     Route: 065
  4. LUCENTIS [Suspect]
     Active Substance: RANIBIZUMAB
     Dosage: UNK (RIGHT EYE)
     Route: 050
     Dates: start: 201009
  5. LUCENTIS [Suspect]
     Active Substance: RANIBIZUMAB
     Indication: POLYPOIDAL CHOROIDAL VASCULOPATHY
     Dosage: LEFT EYE
     Route: 050
     Dates: start: 201004
  6. LUCENTIS [Suspect]
     Active Substance: RANIBIZUMAB
     Dosage: UNK (BOTH EYES)
     Route: 050
     Dates: start: 201006
  7. LUCENTIS [Suspect]
     Active Substance: RANIBIZUMAB
     Dosage: UNK (RIGHT EYE)
     Route: 050
     Dates: start: 201007

REACTIONS (3)
  - Polypoidal choroidal vasculopathy [Unknown]
  - Disease recurrence [Unknown]
  - Age-related macular degeneration [Unknown]
